FAERS Safety Report 18020854 (Version 1)
Quarter: 2020Q3

REPORT INFORMATION
  Report Type: Spontaneous
  Country: IN (occurrence: IN)
  Receive Date: 20200714
  Receipt Date: 20200714
  Transmission Date: 20201103
  Serious: Yes (Other)
  Sender: FDA-Public Use
  Company Number: IN-PFIZER INC-2020124632

PATIENT
  Age: 30 Year
  Sex: Male

DRUGS (1)
  1. CRIZALK [Suspect]
     Active Substance: CRIZOTINIB
     Indication: LUNG CANCER METASTATIC
     Dosage: 250 MG, 2X/DAY
     Route: 048
     Dates: start: 20200204

REACTIONS (4)
  - Bradycardia [Unknown]
  - Hepatic function abnormal [Unknown]
  - Weight increased [Unknown]
  - Renal impairment [Unknown]

NARRATIVE: CASE EVENT DATE: 2020
